FAERS Safety Report 14617021 (Version 1)
Quarter: 2018Q1

REPORT INFORMATION
  Report Type: Other
  Country: JP (occurrence: JP)
  Receive Date: 20180309
  Receipt Date: 20180309
  Transmission Date: 20180509
  Serious: Yes (Other)
  Sender: FDA-Public Use
  Company Number: JP-ACTELION-A-CH2018-168425

PATIENT
  Age: 5 Month
  Sex: Female

DRUGS (4)
  1. SILDENAFIL. [Concomitant]
     Active Substance: SILDENAFIL
  2. BERAPROST [Concomitant]
     Active Substance: BERAPROST
  3. NITRIC OXIDE. [Concomitant]
     Active Substance: NITRIC OXIDE
  4. BOSENTAN. [Suspect]
     Active Substance: BOSENTAN
     Indication: PULMONARY HYPERTENSION
     Route: 048

REACTIONS (3)
  - Pulmonary artery stenosis [Unknown]
  - Respiratory disorder [Unknown]
  - Pneumonectomy [Unknown]
